FAERS Safety Report 9319669 (Version 1)
Quarter: 2013Q2

REPORT INFORMATION
  Report Type: Report from Study
  Country: US (occurrence: US)
  Receive Date: 20130530
  Receipt Date: 20130530
  Transmission Date: 20140414
  Serious: Yes (Hospitalization, Other)
  Sender: FDA-Public Use
  Company Number: US-ABBOTT-13P-163-1094825-00

PATIENT
  Sex: Male

DRUGS (1)
  1. HUMIRA [Suspect]
     Indication: RHEUMATOID ARTHRITIS
     Dates: start: 2005, end: 2011

REACTIONS (9)
  - Immunodeficiency [Unknown]
  - Acute respiratory distress syndrome [Recovered/Resolved]
  - Infection [Unknown]
  - Sepsis [Recovered/Resolved]
  - Pulmonary embolism [Unknown]
  - Pneumonia [Unknown]
  - Bacterial infection [Unknown]
  - Fungal infection [Unknown]
  - Drug hypersensitivity [Not Recovered/Not Resolved]
